FAERS Safety Report 12919525 (Version 3)
Quarter: 2016Q4

REPORT INFORMATION
  Report Type: Spontaneous
  Country: JP (occurrence: JP)
  Receive Date: 20161108
  Receipt Date: 20161213
  Transmission Date: 20170207
  Serious: Yes (Other)
  Sender: FDA-Public Use
  Company Number: JP-ROCHE-1851055

PATIENT
  Age: 62 Year
  Sex: Female

DRUGS (6)
  1. LUCENTIS [Suspect]
     Active Substance: RANIBIZUMAB
     Indication: DIABETIC RETINAL OEDEMA
     Dosage: UNK, LEFT EYE
     Route: 031
     Dates: start: 20140411
  2. LUCENTIS [Suspect]
     Active Substance: RANIBIZUMAB
     Dosage: 0.5, LEFT EYE
     Route: 031
     Dates: start: 20140703
  3. EYLEA [Concomitant]
     Active Substance: AFLIBERCEPT
     Indication: PRODUCT USED FOR UNKNOWN INDICATION
     Dosage: 0.5 MG, UNK
     Route: 031
     Dates: start: 20150723
  4. LUCENTIS [Suspect]
     Active Substance: RANIBIZUMAB
     Dosage: 0.5 MG, LEFT EYE
     Route: 031
     Dates: start: 20140520
  5. LUCENTIS [Suspect]
     Active Substance: RANIBIZUMAB
     Dosage: 0.5, LEFT EYE
     Route: 031
     Dates: start: 20140918
  6. LUCENTIS [Suspect]
     Active Substance: RANIBIZUMAB
     Dosage: 0.5, LEFT EYE
     Route: 031
     Dates: start: 20150120, end: 20150120

REACTIONS (3)
  - Retinal tear [Not Recovered/Not Resolved]
  - Disease progression [Unknown]
  - Diabetic retinal oedema [Recovering/Resolving]

NARRATIVE: CASE EVENT DATE: 20151013
